FAERS Safety Report 7066441-1 (Version None)
Quarter: 2010Q4

REPORT INFORMATION
  Report Type: 
  Country: None (occurrence: None)
  Receive Date: 20101027
  Receipt Date: 20091210
  Transmission Date: 20110411
  Serious: No
  Sender: FDA-Public Use
  Company Number: US-WYE-H12604409

PATIENT
  Age: 64 Year
  Sex: Female

DRUGS (1)
  1. PREMPRO [Suspect]
     Indication: HORMONE REPLACEMENT THERAPY
     Dosage: .45/1.5MG QD
     Route: 048
     Dates: start: 20090801

REACTIONS (3)
  - DRUG INEFFECTIVE [None]
  - PRODUCT PACKAGING ISSUE [None]
  - PRODUCT SIZE ISSUE [None]
